FAERS Safety Report 23096820 (Version 2)
Quarter: 2023Q4

REPORT INFORMATION
  Report Type: Spontaneous
  Country: CA (occurrence: CA)
  Receive Date: 20231023
  Receipt Date: 20231024
  Transmission Date: 20240109
  Serious: Yes (Other)
  Sender: FDA-Public Use
  Company Number: CA-MLMSERVICE-20231010-4589370-1

PATIENT
  Age: 71 Year
  Sex: Female

DRUGS (15)
  1. LEVOFLOXACIN [Suspect]
     Active Substance: LEVOFLOXACIN
     Indication: Pneumonia
     Dosage: UNK
     Dates: start: 2016
  2. LEVOFLOXACIN [Suspect]
     Active Substance: LEVOFLOXACIN
     Indication: Bronchitis
     Dosage: UNK
     Dates: start: 2019
  3. AMOXICILLIN\CLAVULANIC ACID [Suspect]
     Active Substance: AMOXICILLIN\CLAVULANIC ACID
     Indication: Pneumonia
     Dosage: UNK
     Dates: start: 2018
  4. MOXIFLOXACIN [Suspect]
     Active Substance: MOXIFLOXACIN
     Indication: Pneumonia
     Dosage: UNK
     Dates: start: 2017
  5. CEFADROXIL [Suspect]
     Active Substance: CEFADROXIL
     Indication: Cellulitis
     Dosage: UNK
     Dates: start: 2015
  6. DURVALUMAB [Concomitant]
     Active Substance: DURVALUMAB
     Indication: Metastases to lymph nodes
     Dosage: UNK
     Dates: start: 2015, end: 2016
  7. DURVALUMAB [Concomitant]
     Active Substance: DURVALUMAB
     Indication: Malignant melanoma
     Dosage: UNK
     Dates: start: 2016, end: 2017
  8. IPILIMUMAB [Concomitant]
     Active Substance: IPILIMUMAB
     Indication: Disease progression
     Dosage: UNK UNK, CYCLIC (3 CYCLES)
     Dates: start: 201812, end: 2019
  9. IPILIMUMAB [Concomitant]
     Active Substance: IPILIMUMAB
     Indication: Malignant melanoma
  10. IPILIMUMAB [Concomitant]
     Active Substance: IPILIMUMAB
     Indication: Metastases to lymph nodes
  11. NIVOLUMAB [Concomitant]
     Active Substance: NIVOLUMAB
     Indication: Metastases to lymph nodes
     Dosage: UNK, CYCLIC (3 CYCLES)
     Dates: start: 2018
  12. NIVOLUMAB [Concomitant]
     Active Substance: NIVOLUMAB
     Indication: Disease progression
     Dosage: UNK, CYCLIC (10 CYCLES)
     Dates: start: 202107
  13. NIVOLUMAB [Concomitant]
     Active Substance: NIVOLUMAB
     Indication: Malignant melanoma
  14. TRAMETINIB [Concomitant]
     Active Substance: TRAMETINIB
     Indication: Metastases to lymph nodes
     Dosage: UNK
     Dates: start: 2015, end: 2016
  15. TRAMETINIB [Concomitant]
     Active Substance: TRAMETINIB
     Indication: Malignant melanoma
     Dosage: UNK
     Dates: start: 2016, end: 2017

REACTIONS (1)
  - Gastrointestinal disorder [Recovering/Resolving]

NARRATIVE: CASE EVENT DATE: 20210701
